FAERS Safety Report 9605683 (Version 2)
Quarter: 2013Q4

REPORT INFORMATION
  Report Type: Not Available
  Country: IT (occurrence: IT)
  Receive Date: 20131008
  Receipt Date: 20131018
  Transmission Date: 20140711
  Serious: Yes (Hospitalization)
  Sender: FDA-Public Use
  Company Number: IT-NAPPMUNDI-GBR-2013-0015912

PATIENT
  Age: 65 Year
  Sex: Male
  Weight: 85 kg

DRUGS (2)
  1. OXYCONTIN 40 MG COMPRESSE A RILASCIO PROLUNGATO [Suspect]
     Indication: PAIN
     Dosage: 180 MG, DAILY
     Route: 048
     Dates: start: 20130718, end: 20130803
  2. JEVTANA [Suspect]
     Indication: PROSTATE CANCER
     Dosage: 50 MG/CYCLE
     Route: 042
     Dates: start: 20130718

REACTIONS (3)
  - Hyperpyrexia [Recovered/Resolved]
  - Pneumonia [Recovered/Resolved]
  - Respiratory depression [Recovered/Resolved]
